FAERS Safety Report 25947144 (Version 1)
Quarter: 2025Q4

REPORT INFORMATION
  Report Type: Spontaneous
  Country: EU (occurrence: EU)
  Receive Date: 20251022
  Receipt Date: 20251022
  Transmission Date: 20260118
  Serious: Yes (Life-Threatening, Other)
  Sender: RANBAXY
  Company Number: None

PATIENT
  Age: 40 Year
  Sex: Female
  Weight: 92 kg

DRUGS (1)
  1. RIVAROXABAN [Suspect]
     Active Substance: RIVAROXABAN
     Indication: Atrial fibrillation
     Dosage: 15 MILLIGRAM, DAILY
     Route: 048
     Dates: start: 20161101, end: 20250617

REACTIONS (4)
  - Transaminases increased [Not Recovered/Not Resolved]
  - Renal impairment [Not Recovered/Not Resolved]
  - Hepatic failure [Not Recovered/Not Resolved]
  - Anaemia [Not Recovered/Not Resolved]
